FAERS Safety Report 10533670 (Version 1)
Quarter: 2014Q4

REPORT INFORMATION
  Report Type: Spontaneous
  Country: US (occurrence: None)
  Receive Date: 20141021
  Receipt Date: 20141021
  Transmission Date: 20150529
  Serious: Yes (Other)
  Sender: FDA-Public Use
  Company Number: None

PATIENT
  Age: 28 Year
  Sex: Male

DRUGS (1)
  1. VANCOMYCIN [Suspect]
     Active Substance: VANCOMYCIN
     Indication: CELLULITIS ORBITAL
     Dosage: 1.2 5 GR IN 250 ML NS ONCE DAILY IV
     Route: 042
     Dates: start: 20141010, end: 20141018

REACTIONS (7)
  - Dyspnoea [None]
  - Incorrect drug administration rate [None]
  - Feeling cold [None]
  - Erythema [None]
  - Rash [None]
  - Pruritus [None]
  - Hypersensitivity [None]

NARRATIVE: CASE EVENT DATE: 20141018
